FAERS Safety Report 9803793 (Version 1)
Quarter: 2014Q1

REPORT INFORMATION
  Report Type: Spontaneous
  Country: US (occurrence: US)
  Receive Date: 20140108
  Receipt Date: 20140108
  Transmission Date: 20141002
  Serious: No
  Sender: FDA-Public Use
  Company Number: US-GLAXOSMITHKLINE-A1039335A

PATIENT
  Age: 56 Year
  Sex: Male

DRUGS (5)
  1. LOVAZA [Suspect]
     Indication: BLOOD TRIGLYCERIDES INCREASED
     Dosage: 4TAB TWICE PER DAY
     Route: 048
     Dates: start: 201308
  2. INSULIN [Concomitant]
  3. METFORMIN [Concomitant]
  4. LISINOPRIL [Concomitant]
  5. OXYCODONE [Concomitant]

REACTIONS (3)
  - Abdominal discomfort [Recovering/Resolving]
  - Chest discomfort [Recovering/Resolving]
  - Nausea [Recovering/Resolving]
